FAERS Safety Report 24352403 (Version 1)
Quarter: 2024Q3

REPORT INFORMATION
  Report Type: Report from Study
  Country: IT (occurrence: IT)
  Receive Date: 20240923
  Receipt Date: 20240923
  Transmission Date: 20241016
  Serious: No
  Sender: ROCHE
  Company Number: None

PATIENT
  Age: 31 Year
  Sex: Female

DRUGS (3)
  1. TRASTUZUMAB [Suspect]
     Active Substance: TRASTUZUMAB
     Indication: Breast cancer metastatic
     Dosage: START OF THERAPY 02/15/2024 - THERAPY EVERY 21 DAYS - II CYCLE
     Route: 065
     Dates: start: 20240307, end: 20240307
  2. PERTUZUMAB [Suspect]
     Active Substance: PERTUZUMAB
     Indication: Breast cancer metastatic
     Dosage: START OF THERAPY 02/15/2024 - THERAPY EVERY 21 DAYS - II CYCLE
     Route: 065
     Dates: start: 20240307, end: 20240307
  3. DOCETAXEL [Suspect]
     Active Substance: DOCETAXEL\DOCETAXEL ANHYDROUS
     Indication: Breast cancer metastatic
     Dosage: START OF THERAPY 02/15/2024 - THERAPY EVERY 21 DAYS - II CYCLE
     Route: 065
     Dates: start: 20240307, end: 20240307

REACTIONS (1)
  - Anaemia [Recovering/Resolving]

NARRATIVE: CASE EVENT DATE: 20240322
